FAERS Safety Report 6679849-0 (Version None)
Quarter: 2010Q2

REPORT INFORMATION
  Report Type: 
  Country: None (occurrence: None)
  Receive Date: 20100408
  Receipt Date: 20100408
  Transmission Date: 20101027
  Serious: Yes (Hospitalization)
  Sender: FDA-Public Use
  Company Number: None

PATIENT
  Sex: Female
  Weight: 72.5755 kg

DRUGS (1)
  1. PROTONIX [Suspect]
     Indication: ABDOMINAL PAIN UPPER
     Dosage: 40 MG (EC) BID PO
     Route: 048
     Dates: start: 20100405, end: 20100406

REACTIONS (2)
  - CHEST DISCOMFORT [None]
  - HEART RATE IRREGULAR [None]
